FAERS Safety Report 7862814-5 (Version None)
Quarter: 2011Q4

REPORT INFORMATION
  Report Type: 
  Country: None (occurrence: None)
  Receive Date: 20111027
  Receipt Date: 20101115
  Transmission Date: 20120403
  Serious: Yes (Other)
  Sender: FDA-Public Use
  Company Number: US-AMGEN-USASP2010004986

PATIENT
  Age: 47 Year

DRUGS (12)
  1. PLAQUENIL [Concomitant]
     Dosage: 200 MG, UNK
     Route: 048
  2. ALBUTEROL [Concomitant]
     Dosage: 90 UNK, UNK
  3. ADVAIR DISKUS 100/50 [Concomitant]
  4. PREDNISONE [Concomitant]
     Dosage: 5 MG, UNK
     Route: 048
  5. VITAMIN D [Concomitant]
     Dosage: 50000 IU, UNK
     Route: 048
  6. MAXALT                             /01406501/ [Concomitant]
     Dosage: 10 MG, UNK
     Route: 048
  7. MOTRIN [Concomitant]
     Dosage: 800 MG, UNK
     Route: 048
  8. METHOTREXATE [Concomitant]
     Dosage: 2.5 MG, UNK
     Route: 048
  9. METFORMIN HCL [Concomitant]
     Dosage: 500 MG, UNK
     Route: 048
  10. ENBREL [Suspect]
     Indication: PRODUCT USED FOR UNKNOWN INDICATION
     Dosage: 50 MG, QWK
  11. FOLIC ACID [Concomitant]
     Dosage: 1 MG, UNK
     Route: 048
  12. LEVOTHYROXINE SODIUM [Concomitant]
     Dosage: 150 MG, UNK

REACTIONS (1)
  - UVEITIS [None]
